FAERS Safety Report 18757751 (Version 2)
Quarter: 2021Q2

REPORT INFORMATION
  Report Type: Spontaneous
  Country: CA (occurrence: CA)
  Receive Date: 20210119
  Receipt Date: 20210507
  Transmission Date: 20210717
  Serious: Yes (Other)
  Sender: FDA-Public Use
  Company Number: CA-SAMSUNG BIOEPIS-SB-2021-00717

PATIENT
  Age: 36 Year
  Sex: Male
  Weight: 73 kg

DRUGS (4)
  1. HYDROCORTISONE. [Concomitant]
     Active Substance: HYDROCORTISONE
     Indication: PREMEDICATION
     Route: 042
  2. ACETAMINOPHEN. [Concomitant]
     Active Substance: ACETAMINOPHEN
     Indication: PREMEDICATION
     Route: 048
  3. DIPHENHYDRAMINE. [Concomitant]
     Active Substance: DIPHENHYDRAMINE
     Indication: PREMEDICATION
     Route: 042
  4. INFLIXIMAB [Suspect]
     Active Substance: INFLIXIMAB
     Indication: CROHN^S DISEASE
     Route: 042

REACTIONS (10)
  - Condition aggravated [Unknown]
  - Feeling abnormal [Unknown]
  - Impaired quality of life [Unknown]
  - COVID-19 [Unknown]
  - Drug ineffective [Unknown]
  - Off label use [Unknown]
  - Intentional product use issue [Unknown]
  - Heart rate decreased [Unknown]
  - Impaired work ability [Unknown]
  - Inappropriate schedule of product administration [Unknown]
